FAERS Safety Report 17316409 (Version 1)
Quarter: 2020Q1

REPORT INFORMATION
  Report Type: Report from Study
  Country: None (occurrence: CA)
  Receive Date: 20200124
  Receipt Date: 20200124
  Transmission Date: 20200409
  Serious: Yes (Other)
  Sender: FDA-Public Use
  Company Number: CA-ABBVIE-19K-028-2733927-00

PATIENT
  Sex: Male

DRUGS (2)
  1. HUMIRA [Suspect]
     Active Substance: ADALIMUMAB
     Indication: CROHN^S DISEASE
     Route: 058
     Dates: start: 20180710
  2. HUMIRA [Suspect]
     Active Substance: ADALIMUMAB
     Route: 058

REACTIONS (14)
  - Faecal calprotectin abnormal [Not Recovered/Not Resolved]
  - Pouchitis [Unknown]
  - Pain [Recovered/Resolved]
  - Anastomotic ulcer [Not Recovered/Not Resolved]
  - Colitis [Not Recovered/Not Resolved]
  - Postoperative adhesion [Unknown]
  - Frequent bowel movements [Not Recovered/Not Resolved]
  - Colectomy [Unknown]
  - Ileal ulcer [Not Recovered/Not Resolved]
  - Post procedural diarrhoea [Unknown]
  - Therapeutic product effect incomplete [Not Recovered/Not Resolved]
  - Nausea [Unknown]
  - Fatigue [Not Recovered/Not Resolved]
  - Abnormal faeces [Unknown]
